FAERS Safety Report 4765752-X (Version None)
Quarter: 2005Q3

REPORT INFORMATION
  Report Type: 
  Country: None (occurrence: None)
  Receive Date: 20050906
  Receipt Date: 20050824
  Transmission Date: 20060218
  Serious: Yes (Death, Other)
  Sender: FDA-Public Use
  Company Number: 2005-08-1801

PATIENT
  Age: 70 Year
  Sex: Female

DRUGS (2)
  1. IODINE SOLUTION ORAL SOLUTION [Suspect]
     Dosage: ORAL
     Route: 048
  2. DIPROSONE [Suspect]
     Dosage: ORAL
     Route: 048

REACTIONS (21)
  - ACUTE RESPIRATORY DISTRESS SYNDROME [None]
  - ANURIA [None]
  - ASCITES [None]
  - ASPARTATE AMINOTRANSFERASE INCREASED [None]
  - BLOOD LACTATE DEHYDROGENASE INCREASED [None]
  - BLOOD PRESSURE SYSTOLIC INCREASED [None]
  - DIARRHOEA [None]
  - GASTROINTESTINAL MUCOSAL NECROSIS [None]
  - HAEMODIALYSIS [None]
  - HYPOTENSION [None]
  - HYPOXIA [None]
  - INTENTIONAL MISUSE [None]
  - LARYNGEAL OEDEMA [None]
  - METABOLIC ACIDOSIS [None]
  - MULTI-ORGAN FAILURE [None]
  - PNEUMONITIS CHEMICAL [None]
  - PULMONARY NECROSIS [None]
  - PULMONARY OEDEMA [None]
  - RENAL FAILURE [None]
  - RHABDOMYOLYSIS [None]
  - TACHYCARDIA [None]
